FAERS Safety Report 4785007-7 (Version None)
Quarter: 2005Q3

REPORT INFORMATION
  Report Type: 
  Country: None (occurrence: None)
  Receive Date: 20050928
  Receipt Date: 20050913
  Transmission Date: 20060218
  Serious: Yes (Death, Hospitalization)
  Sender: FDA-Public Use
  Company Number: USA0509108087

PATIENT
  Age: 71 Year
  Sex: Female

DRUGS (1)
  1. FORTEO [Suspect]
     Indication: OSTEOPOROSIS
     Dates: start: 20031001, end: 20050315

REACTIONS (2)
  - CONDITION AGGRAVATED [None]
  - EMPHYSEMA [None]
